FAERS Safety Report 11295337 (Version 1)
Quarter: 2015Q3

REPORT INFORMATION
  Report Type: Spontaneous
  Country: US (occurrence: None)
  Receive Date: 20150722
  Receipt Date: 20150722
  Transmission Date: 20151125
  Serious: Yes (Disabling)
  Sender: FDA-Public Use
  Company Number: None

PATIENT
  Age: 55 Year
  Sex: Female
  Weight: 104.78 kg

DRUGS (3)
  1. MORPHINE SULFATE ER [Suspect]
     Active Substance: MORPHINE SULFATE
     Indication: COMPLEX REGIONAL PAIN SYNDROME
     Dosage: 90 PILLS THREE TIMES DAILY TAKEN BY MOUTH
     Route: 048
     Dates: start: 20141201, end: 20141231
  2. ASPRINE [Concomitant]
  3. MULIT VITAMINS [Concomitant]

REACTIONS (8)
  - Extrasystoles [None]
  - Lethargy [None]
  - Nausea [None]
  - Drug screen positive [None]
  - Heart rate decreased [None]
  - Product quality issue [None]
  - Product substitution issue [None]
  - Malaise [None]

NARRATIVE: CASE EVENT DATE: 20141201
